FAERS Safety Report 15929498 (Version 1)
Quarter: 2019Q1

REPORT INFORMATION
  Report Type: Spontaneous
  Country: FR (occurrence: FR)
  Receive Date: 20190206
  Receipt Date: 20190206
  Transmission Date: 20190417
  Serious: Yes (Life-Threatening)
  Sender: FDA-Public Use
  Company Number: FR-BAUSCH-BL-2019-003370

PATIENT
  Age: 67 Year
  Sex: Male
  Weight: 84 kg

DRUGS (6)
  1. LORAZEPAM. [Suspect]
     Active Substance: LORAZEPAM
     Indication: POISONING DELIBERATE
     Dosage: 1 BOTTLE
     Route: 048
     Dates: start: 20181218, end: 20181218
  2. BROMAZEPAM [Suspect]
     Active Substance: BROMAZEPAM
     Indication: POISONING DELIBERATE
     Dosage: 1/2 BOTTLE
     Route: 048
     Dates: start: 20181218, end: 20181218
  3. NORAMIDOPYRINE BASE [Suspect]
     Active Substance: NORAMIDOPYRINE
     Indication: POISONING DELIBERATE
     Dosage: 3 BOTTLES
     Route: 048
     Dates: start: 20181218, end: 20181218
  4. NAPROXENE [Suspect]
     Active Substance: NAPROXEN
     Indication: POISONING DELIBERATE
     Route: 048
     Dates: start: 20181218, end: 20181218
  5. HALDOL [Suspect]
     Active Substance: HALOPERIDOL
     Indication: POISONING DELIBERATE
     Route: 048
     Dates: start: 20181218, end: 20181218
  6. DEPAKINE [Suspect]
     Active Substance: VALPROATE SODIUM
     Indication: POISONING DELIBERATE
     Route: 048
     Dates: start: 20181218, end: 20181218

REACTIONS (7)
  - Hypoglycaemia [Recovering/Resolving]
  - Hypothermia [Recovered/Resolved]
  - Diarrhoea [Recovered/Resolved]
  - Altered state of consciousness [Recovering/Resolving]
  - Haematemesis [Recovering/Resolving]
  - Acute kidney injury [Recovering/Resolving]
  - Vomiting [Recovered/Resolved]

NARRATIVE: CASE EVENT DATE: 20181218
